FAERS Safety Report 15357987 (Version 1)
Quarter: 2018Q3

REPORT INFORMATION
  Report Type: Spontaneous
  Country: BR (occurrence: BR)
  Receive Date: 20180906
  Receipt Date: 20180906
  Transmission Date: 20181010
  Serious: Yes (Hospitalization)
  Sender: FDA-Public Use
  Company Number: BR-ELI_LILLY_AND_COMPANY-BR201808015043

PATIENT
  Age: 5 Year
  Sex: Female

DRUGS (5)
  1. HUMULIN N [Suspect]
     Active Substance: INSULIN HUMAN
     Dosage: 2.5 IU, EACH MORNING
     Route: 065
  2. HUMULIN N [Suspect]
     Active Substance: INSULIN HUMAN
     Dosage: 3 IU, EACH EVENING
     Route: 065
     Dates: start: 20180530
  3. HUMALOG [Suspect]
     Active Substance: INSULIN LISPRO
     Indication: PRODUCT USED FOR UNKNOWN INDICATION
     Dosage: UNK UNK, BEFORE MEALS
     Route: 065
     Dates: start: 20180530
  4. HUMULIN N [Suspect]
     Active Substance: INSULIN HUMAN
     Dosage: 1 IU, EACH EVENING
     Route: 065
  5. HUMULIN N [Suspect]
     Active Substance: INSULIN HUMAN
     Indication: PRODUCT USED FOR UNKNOWN INDICATION
     Dosage: 5 IU, EACH MORNING
     Route: 065
     Dates: start: 20180530

REACTIONS (7)
  - Diarrhoea [Unknown]
  - Blood glucose decreased [Unknown]
  - Emotional disorder [Unknown]
  - Vomiting [Unknown]
  - Intentional product misuse [Unknown]
  - Skin disorder [Unknown]
  - Hyperglycaemia [Unknown]

NARRATIVE: CASE EVENT DATE: 20180626
